FAERS Safety Report 7017034-3 (Version None)
Quarter: 2010Q3

REPORT INFORMATION
  Report Type: 
  Country: None (occurrence: None)
  Receive Date: 20100927
  Receipt Date: 20100920
  Transmission Date: 20110219
  Serious: No
  Sender: FDA-Public Use
  Company Number: US-PFIZER INC-2010119824

PATIENT
  Sex: Female

DRUGS (7)
  1. ZOLOFT [Suspect]
     Indication: ANXIETY
     Dosage: 25 MG, 1X/DAY
     Route: 048
     Dates: start: 20100701
  2. ZOLOFT [Interacting]
     Indication: DEPRESSION
  3. CELLCEPT [Interacting]
     Indication: IMMUNOSUPPRESSANT DRUG THERAPY
     Dosage: UNK
  4. RAPAMUNE [Interacting]
     Indication: IMMUNOSUPPRESSANT DRUG THERAPY
     Dosage: UNK
  5. DEXLANSOPRAZOLE [Concomitant]
     Indication: GASTRIC DISORDER
     Dosage: UNK
  6. LOTREL [Concomitant]
     Indication: HYPERTENSION
     Dosage: UNK
  7. AMBIEN [Concomitant]
     Dosage: UNK

REACTIONS (3)
  - DRUG INTERACTION [None]
  - FATIGUE [None]
  - SOMNOLENCE [None]
